FAERS Safety Report 7556338-2 (Version None)
Quarter: 2011Q2

REPORT INFORMATION
  Report Type: 
  Country: None (occurrence: None)
  Receive Date: 20110620
  Receipt Date: 20110609
  Transmission Date: 20111010
  Serious: Yes (Hospitalization, Other)
  Sender: FDA-Public Use
  Company Number: JP-JNJFOC-20110101314

PATIENT
  Sex: Female
  Weight: 37 kg

DRUGS (11)
  1. REVLIMID [Suspect]
     Indication: MULTIPLE MYELOMA
     Route: 048
  2. OXINORM (OXYCODONE HYDROCHLORIDE) [Concomitant]
     Indication: CANCER PAIN
     Route: 048
     Dates: start: 20101103
  3. FENTANYL-100 [Suspect]
     Route: 062
     Dates: start: 20101026, end: 20101231
  4. AMITRIPTYLINE HCL [Concomitant]
     Indication: NEUROPATHY PERIPHERAL
     Route: 048
     Dates: start: 20101105, end: 20101231
  5. FENTANYL-100 [Suspect]
     Route: 062
     Dates: start: 20110101, end: 20110110
  6. VOLTAREN [Concomitant]
     Indication: CANCER PAIN
     Route: 054
     Dates: start: 20101026
  7. CLONAZEPAM [Concomitant]
     Indication: INSOMNIA
     Route: 048
     Dates: start: 20101102, end: 20101231
  8. FENTANYL-100 [Suspect]
     Indication: CANCER PAIN
     Dosage: 2 PATCHES WERE APPLIED
     Route: 062
  9. MAGMITT [Concomitant]
     Indication: CONSTIPATION
     Route: 048
     Dates: start: 20101025, end: 20101221
  10. REVLIMID [Suspect]
     Route: 048
     Dates: start: 20101015, end: 20101231
  11. GABAPENTIN [Concomitant]
     Indication: NEUROPATHY PERIPHERAL
     Route: 048
     Dates: start: 20101105, end: 20101231

REACTIONS (5)
  - WRONG TECHNIQUE IN DRUG USAGE PROCESS [None]
  - LOSS OF CONSCIOUSNESS [None]
  - EXPOSURE TO EXTREME TEMPERATURE [None]
  - STUPOR [None]
  - PYREXIA [None]
